FAERS Safety Report 10362535 (Version 3)
Quarter: 2014Q4

REPORT INFORMATION
  Report Type: Spontaneous
  Country: US (occurrence: None)
  Receive Date: 20140729
  Receipt Date: 20141015
  Transmission Date: 20150528
  Serious: Yes (Other)
  Sender: FDA-Public Use
  Company Number: ADR-2014-01143

PATIENT
  Age: 43 Year
  Sex: Female

DRUGS (15)
  1. ADDERALL [Suspect]
     Active Substance: AMPHETAMINE ASPARTATE\AMPHETAMINE SULFATE\DEXTROAMPHETAMINE SACCHARATE\DEXTROAMPHETAMINE SULFATE
  2. MORPHINE SULFATE. [Suspect]
     Active Substance: MORPHINE SULFATE
  3. AVONEX [Suspect]
     Active Substance: INTERFERON BETA-1A
  4. LYRICA [Suspect]
     Active Substance: PREGABALIN
  5. METHOTREXATE [Suspect]
     Active Substance: METHOTREXATE
  6. OXYCODONE [Suspect]
     Active Substance: OXYCODONE
  7. PROZAC [Suspect]
     Active Substance: FLUOXETINE HYDROCHLORIDE
  8. VALIUM [Suspect]
     Active Substance: DIAZEPAM
  9. BACLOFEN. [Suspect]
     Active Substance: BACLOFEN
  10. FLOMAX [Suspect]
     Active Substance: TAMSULOSIN HYDROCHLORIDE
  11. NUEDEXTA [Suspect]
     Active Substance: DEXTROMETHORPHAN HYDROBROMIDE\QUINIDINE SULFATE
  12. COMPOUNDED MORPHINE INTRATHECAL [Suspect]
     Active Substance: MORPHINE
     Dates: start: 20140522
  13. LISINOPRIL. [Suspect]
     Active Substance: LISINOPRIL
  14. COMPOUNDED BACLOFEN INTRATHECAL [Suspect]
     Active Substance: BACLOFEN
     Indication: MUSCLE SPASTICITY
     Dates: start: 20140326
  15. SOLU-MEDROL [Suspect]
     Active Substance: METHYLPREDNISOLONE SODIUM SUCCINATE

REACTIONS (10)
  - Abdominal pain upper [None]
  - Pain in extremity [None]
  - Back pain [None]
  - Device dislocation [None]
  - Drug ineffective [None]
  - Medical device complication [None]
  - Abdominal distension [None]
  - Pain [None]
  - Arthralgia [None]
  - Loss of employment [None]

NARRATIVE: CASE EVENT DATE: 20140326
